FAERS Safety Report 10040724 (Version 2)
Quarter: 2014Q2

REPORT INFORMATION
  Report Type: Spontaneous
  Country: US (occurrence: US)
  Receive Date: 20140327
  Receipt Date: 20140424
  Transmission Date: 20141212
  Serious: Yes (Other)
  Sender: FDA-Public Use
  Company Number: US-UCBSA-115449

PATIENT
  Age: 53 Year
  Sex: Female
  Weight: 47.17 kg

DRUGS (13)
  1. CIMZIA [Suspect]
     Indication: CROHN^S DISEASE
     Dates: start: 201310, end: 201311
  2. CIMZIA [Suspect]
     Indication: CROHN^S DISEASE
     Dates: start: 201312
  3. CIMZIA [Suspect]
     Indication: CROHN^S DISEASE
  4. BENADRYL [Concomitant]
     Indication: HYPERSENSITIVITY
  5. SUDAFED [Concomitant]
     Indication: HYPERSENSITIVITY
     Dosage: DAILY, PRN
  6. PRILOSEC [Concomitant]
     Indication: GASTROOESOPHAGEAL REFLUX DISEASE
  7. CALCIUM / VITAMIN D [Concomitant]
     Indication: VITAMIN SUPPLEMENTATION
  8. VITAMIN D2 [Concomitant]
     Route: 048
  9. ONE A DAY WOMAN^S [Concomitant]
     Dosage: ONCE A DAY
  10. ENERGY B12 [Concomitant]
     Dosage: ONCE DAILY
  11. IMODIUM [Concomitant]
     Dosage: 1 ONCE DAILY
  12. PARAMODAL [Concomitant]
     Dosage: 25 MG BIWEEKLY
  13. NASACORT [Concomitant]
     Indication: HYPERSENSITIVITY

REACTIONS (5)
  - Procedural intestinal perforation [Recovered/Resolved]
  - Liver function test abnormal [Recovered/Resolved]
  - Nausea [Recovered/Resolved]
  - Weight decreased [Recovered/Resolved]
  - Restless legs syndrome [Not Recovered/Not Resolved]
